FAERS Safety Report 8968183 (Version 2)
Quarter: 2013Q1

REPORT INFORMATION
  Report Type: Spontaneous
  Country: US (occurrence: US)
  Receive Date: 20121218
  Receipt Date: 20130220
  Transmission Date: 20140127
  Serious: No
  Sender: FDA-Public Use
  Company Number: US-PFIZER INC-2012318531

PATIENT
  Age: 65 Year
  Sex: Female
  Weight: 53.06 kg

DRUGS (3)
  1. ADVIL CONGESTION RELIEF [Suspect]
     Indication: NASAL CONGESTION
     Dosage: 200 MG, 1X/DAY
     Route: 048
     Dates: start: 201212, end: 201212
  2. ADVIL CONGESTION RELIEF [Suspect]
     Indication: HEADACHE
  3. ADVIL CONGESTION RELIEF [Suspect]
     Indication: PAIN

REACTIONS (1)
  - Drug ineffective [Unknown]
